FAERS Safety Report 23773278 (Version 1)
Quarter: 2024Q2

REPORT INFORMATION
  Report Type: Spontaneous
  Country: GB (occurrence: GB)
  Receive Date: 20240423
  Receipt Date: 20240423
  Transmission Date: 20240715
  Serious: Yes (Death, Hospitalization)
  Sender: FDA-Public Use
  Company Number: GB-AMNEAL PHARMACEUTICALS-2024-AMRX-01357

PATIENT
  Age: 86 Year
  Sex: Male

DRUGS (1)
  1. DEXAMETHASONE [Suspect]
     Active Substance: DEXAMETHASONE
     Indication: Brain oedema
     Dosage: UNK
     Route: 048

REACTIONS (4)
  - Pulmonary nocardiosis [Fatal]
  - Decreased appetite [Unknown]
  - Insomnia [Unknown]
  - Oral candidiasis [Unknown]
